FAERS Safety Report 5755977-9 (Version None)
Quarter: 2008Q2

REPORT INFORMATION
  Report Type: 
  Country: None (occurrence: None)
  Receive Date: 20080602
  Receipt Date: 20080501
  Transmission Date: 20081010
  Serious: No
  Sender: FDA-Public Use
  Company Number: US-BAYER-200714015BCC

PATIENT
  Age: 71 Year
  Sex: Male
  Weight: 86 kg

DRUGS (13)
  1. ALEVE [Suspect]
     Indication: ANALGESIA
     Dosage: TOTAL DAILY DOSE: 220 MG  UNIT DOSE: 220 MG
     Route: 048
     Dates: start: 20071129, end: 20071130
  2. ISORDIL [Concomitant]
  3. TENORMIN [Concomitant]
  4. AGGRENOX [Concomitant]
  5. BENTYL [Concomitant]
  6. XANAX [Concomitant]
  7. NEURONTIN [Concomitant]
  8. LIPITOR [Concomitant]
  9. PROTONIX [Concomitant]
  10. ANTIVERT [Concomitant]
  11. DARVOCET [Concomitant]
  12. SINGULAIR [Concomitant]
  13. ZYRTEC [Concomitant]

REACTIONS (1)
  - MUSCULAR WEAKNESS [None]
